FAERS Safety Report 23207971 (Version 1)
Quarter: 2023Q4

REPORT INFORMATION
  Report Type: Spontaneous
  Country: CN (occurrence: CN)
  Receive Date: 20231121
  Receipt Date: 20231121
  Transmission Date: 20240110
  Serious: Yes (Hospitalization, Disabling, Other)
  Sender: FDA-Public Use
  Company Number: CN-GLAXOSMITHKLINE-CNCH2023APC055083

PATIENT

DRUGS (3)
  1. VOLTAREN [Suspect]
     Active Substance: DICLOFENAC SODIUM
     Indication: Postoperative analgesia
     Dosage: 1 DF, QD
     Route: 048
     Dates: start: 20231007, end: 20231021
  2. VOLTAREN [Suspect]
     Active Substance: DICLOFENAC SODIUM
     Indication: Pain
  3. DESONIDE [Suspect]
     Active Substance: DESONIDE
     Indication: Erythema
     Dosage: UNK
     Route: 061
     Dates: start: 20231010

REACTIONS (6)
  - Stevens-Johnson syndrome [Recovering/Resolving]
  - Drug eruption [Recovering/Resolving]
  - Dermatitis exfoliative [Recovering/Resolving]
  - Erythema [Recovering/Resolving]
  - Blister rupture [Recovering/Resolving]
  - Rash [Recovering/Resolving]

NARRATIVE: CASE EVENT DATE: 20231001
